FAERS Safety Report 7624186-0 (Version None)
Quarter: 2011Q3

REPORT INFORMATION
  Report Type: 
  Country: None (occurrence: None)
  Receive Date: 20110720
  Receipt Date: 20110720
  Transmission Date: 20111222
  Serious: Yes (Hospitalization)
  Sender: FDA-Public Use
  Company Number: None

PATIENT
  Age: 25 Year
  Sex: Female
  Weight: 712.59 kg

DRUGS (2)
  1. ERYTHROMYCIN 0.5% OPH. OINT. [Concomitant]
     Indication: OCULAR HYPERAEMIA
     Dosage: ERYTHROMYCIN 0.5% OPH. OINT.
     Route: 047
  2. AZITHROMYCIN [Suspect]
     Indication: UPPER RESPIRATORY TRACT INFECTION
     Dosage: 2 TABLETS DAY 1 THEN 1 TABLET
     Route: 048
     Dates: start: 20110421, end: 20110425

REACTIONS (13)
  - EYELID OEDEMA [None]
  - LIP SWELLING [None]
  - DYSPHAGIA [None]
  - CONDITION AGGRAVATED [None]
  - SKIN DISCOLOURATION [None]
  - RASH ERYTHEMATOUS [None]
  - RASH GENERALISED [None]
  - PYREXIA [None]
  - CHILLS [None]
  - SWOLLEN TONGUE [None]
  - OROPHARYNGEAL BLISTERING [None]
  - STEVENS-JOHNSON SYNDROME [None]
  - OCULAR HYPERAEMIA [None]
